FAERS Safety Report 4755013-7 (Version None)
Quarter: 2005Q3

REPORT INFORMATION
  Report Type: 
  Country: None (occurrence: None)
  Receive Date: 20050829
  Receipt Date: 20050810
  Transmission Date: 20060218
  Serious: Yes (Hospitalization, Disabling)
  Sender: FDA-Public Use
  Company Number: PHNR2005AU01243

PATIENT
  Age: 63 Year
  Sex: Female

DRUGS (2)
  1. GLEEVEC [Suspect]
     Indication: CHRONIC MYELOID LEUKAEMIA
     Dosage: 400 MG, QD
     Route: 048
     Dates: start: 20040201, end: 20050401
  2. GLEEVEC [Suspect]
     Dosage: 600 MG, QD
     Route: 048
     Dates: start: 20050401, end: 20050801

REACTIONS (6)
  - ABASIA [None]
  - CELLULITIS [None]
  - MYOSITIS [None]
  - PAIN [None]
  - RASH [None]
  - SKIN ULCER [None]
